FAERS Safety Report 4913052-7 (Version None)
Quarter: 2006Q1

REPORT INFORMATION
  Report Type: 
  Country: None (occurrence: None)
  Receive Date: 20060210
  Receipt Date: 20060127
  Transmission Date: 20060701
  Serious: Yes (Death)
  Sender: FDA-Public Use
  Company Number: L05-USA-03935-13

PATIENT
  Age: 36 Year
  Sex: Male

DRUGS (4)
  1. CITALOPRAM [Suspect]
  2. HEROIN [Suspect]
  3. COCAINE [Suspect]
  4. TRAZODONE [Suspect]

REACTIONS (5)
  - CARDIAC ARREST [None]
  - DRUG ABUSER [None]
  - PULMONARY OEDEMA [None]
  - RESPIRATORY ARREST [None]
  - TOXICOLOGIC TEST ABNORMAL [None]
